FAERS Safety Report 23436706 (Version 1)
Quarter: 2024Q1

REPORT INFORMATION
  Report Type: Spontaneous
  Country: FR (occurrence: FR)
  Receive Date: 20240124
  Receipt Date: 20240124
  Transmission Date: 20240410
  Serious: Yes (Death)
  Sender: FDA-Public Use
  Company Number: None

PATIENT
  Age: 65 Year
  Sex: Male

DRUGS (7)
  1. BACTRIM [Suspect]
     Active Substance: SULFAMETHOXAZOLE\TRIMETHOPRIM
     Indication: Infection prophylaxis
     Dosage: 3 DF
     Route: 048
     Dates: start: 20230605
  2. IMBRUVICA [Suspect]
     Active Substance: IBRUTINIB
     Indication: Mantle cell lymphoma
     Dosage: 560 MG, QD
     Route: 048
     Dates: start: 20230608
  3. MIRTAZAPINE [Suspect]
     Active Substance: MIRTAZAPINE
     Indication: Depression
     Dosage: 15 MG, QD
     Route: 048
  4. RITUXAN [Suspect]
     Active Substance: RITUXIMAB
     Indication: Mantle cell lymphoma
     Dosage: 1400 MG
     Route: 058
     Dates: start: 20221121
  5. RITUXAN [Suspect]
     Active Substance: RITUXIMAB
     Dosage: 600 MG
     Route: 042
     Dates: start: 20220505, end: 20220913
  6. VALACYCLOVIR HYDROCHLORIDE [Suspect]
     Active Substance: VALACYCLOVIR HYDROCHLORIDE
     Indication: Infection prophylaxis
     Dosage: 1000 MG, QD
     Route: 048
     Dates: start: 20230605
  7. CARBOPLATIN;CYTARABINE;DEXAMETHASONE;RITUXIMAB [Concomitant]
     Indication: Product used for unknown indication
     Dosage: UNK
     Route: 065
     Dates: start: 20220505, end: 20220913

REACTIONS (1)
  - Gastrointestinal haemorrhage [Fatal]
